FAERS Safety Report 25300911 (Version 1)
Quarter: 2025Q2

REPORT INFORMATION
  Report Type: Spontaneous
  Country: US (occurrence: US)
  Receive Date: 20250512
  Receipt Date: 20250512
  Transmission Date: 20250716
  Serious: No
  Sender: BAYER HEALTHCARE LLC
  Company Number: US-BAYER-2025A060831

PATIENT
  Age: 92 Year
  Sex: Male

DRUGS (4)
  1. ASTEPRO [Suspect]
     Active Substance: AZELASTINE HYDROCHLORIDE
     Indication: Hypersensitivity
     Dosage: UNK, BID, ONE SQUIRT IN EACH NOSTRIL
     Route: 045
     Dates: start: 202411, end: 202503
  2. ASTEPRO [Suspect]
     Active Substance: AZELASTINE HYDROCHLORIDE
     Indication: Nasopharyngitis
  3. ASTEPRO ALLERGY [Suspect]
     Active Substance: AZELASTINE HYDROCHLORIDE
     Indication: Hypersensitivity
     Dosage: UNK UNK, BID, ONE SQUIRT IN EACH NOSTRIL.
     Route: 045
     Dates: start: 202411, end: 202503
  4. ASTEPRO ALLERGY [Suspect]
     Active Substance: AZELASTINE HYDROCHLORIDE
     Indication: Nasopharyngitis

REACTIONS (2)
  - Drug ineffective [None]
  - Nasal polyps [Not Recovered/Not Resolved]

NARRATIVE: CASE EVENT DATE: 20241101
